FAERS Safety Report 5085807-2 (Version None)
Quarter: 2006Q3

REPORT INFORMATION
  Report Type: 
  Country: None (occurrence: None)
  Receive Date: 20060817
  Receipt Date: 20060807
  Transmission Date: 20061208
  Serious: Yes (Disabling, Other)
  Sender: FDA-Public Use
  Company Number: 2006097535

PATIENT
  Age: 81 Year
  Sex: Female
  Weight: 85.2762 kg

DRUGS (5)
  1. LYRICA [Suspect]
     Indication: PAIN IN EXTREMITY
     Dosage: 50 MG (50 MG, 1 IN 1 D)
     Dates: start: 20060802
  2. ATENOLOL [Concomitant]
  3. OMEGA 3 (FISH OIL) [Concomitant]
  4. NORVASC [Concomitant]
  5. CITRACAL + D (CALCIUM CITRATE, ERGOCALCIFEROL) [Concomitant]

REACTIONS (2)
  - ABASIA [None]
  - INADEQUATE ANALGESIA [None]
